FAERS Safety Report 25930742 (Version 1)
Quarter: 2025Q4

REPORT INFORMATION
  Report Type: Spontaneous
  Country: US (occurrence: None)
  Receive Date: 20251016
  Receipt Date: 20251016
  Transmission Date: 20260117
  Serious: Yes (Life-Threatening, Disabling)
  Sender: FDA-CTU
  Company Number: None

PATIENT
  Age: 74 Year
  Sex: Male
  Weight: 97.52 kg

DRUGS (4)
  1. ORGOVYX [Suspect]
     Active Substance: RELUGOLIX
     Indication: Prostate cancer
     Dosage: 1 TABLET(S) ONCE A DAY TKEN BY MOUTH?
     Route: 048
     Dates: start: 20250305, end: 20250928
  2. VITAMINS [Concomitant]
     Active Substance: VITAMINS
  3. cholraphenarimine [Concomitant]
  4. LOSARTAN [Concomitant]
     Active Substance: LOSARTAN

REACTIONS (15)
  - Hot flush [None]
  - Cognitive disorder [None]
  - Skin odour abnormal [None]
  - Testicular pain [None]
  - Muscle atrophy [None]
  - Asthenia [None]
  - Bone loss [None]
  - Heart rate irregular [None]
  - Chest pain [None]
  - Alopecia [None]
  - Alopecia [None]
  - Sleep disorder [None]
  - Feeling hot [None]
  - Chills [None]
  - Anxiety [None]

NARRATIVE: CASE EVENT DATE: 20250306
